FAERS Safety Report 6810283-6 (Version None)
Quarter: 2010Q2

REPORT INFORMATION
  Report Type: 
  Country: None (occurrence: None)
  Receive Date: 20100630
  Receipt Date: 20100621
  Transmission Date: 20101027
  Serious: Yes (Other)
  Sender: FDA-Public Use
  Company Number: JP-BRISTOL-MYERS SQUIBB COMPANY-15139025

PATIENT
  Age: 28 Year
  Sex: Male
  Weight: 58 kg

DRUGS (4)
  1. ABILIFY [Suspect]
     Indication: SCHIZOPHRENIA
     Route: 048
     Dates: start: 20100513, end: 20100517
  2. RIVOTRIL [Concomitant]
     Dosage: DOSAGE FORM= TABLET; ONGOING.
     Dates: start: 20091003
  3. RISPERDAL [Concomitant]
     Dosage: DOSAGE FORM=TABLET; ONGOING.
     Dates: start: 20091003
  4. ZYPREXA [Concomitant]
     Dosage: DOSAGE FORM= TABLET; ONGOING.
     Dates: start: 20091003

REACTIONS (1)
  - HICCUPS [None]
